FAERS Safety Report 8386656-X (Version None)
Quarter: 2012Q2

REPORT INFORMATION
  Report Type: 
  Country: None (occurrence: None)
  Receive Date: 20120525
  Receipt Date: 20120515
  Transmission Date: 20120825
  Serious: Yes (Hospitalization, Other)
  Sender: FDA-Public Use
  Company Number: US-PFIZER INC-2012118291

PATIENT
  Sex: Female
  Weight: 52.8 kg

DRUGS (3)
  1. TEMOZOLOMIDE [Suspect]
     Indication: LYMPHOMA
     Dosage: 100 MG/M2, DAYS 1-5
     Route: 048
     Dates: start: 20111209, end: 20120325
  2. IRINOTECAN HCL [Suspect]
     Indication: LYMPHOMA
     Dosage: 90 MG/M2, ON DAYS 1-5
     Route: 048
     Dates: start: 20111209, end: 20120325
  3. TEMSIROLIMUS [Suspect]
     Indication: LYMPHOMA
     Dosage: 35 MG/M2, OVER 30 MINS ON DAYS 1 AND 8
     Route: 042
     Dates: start: 20111209, end: 20120328

REACTIONS (2)
  - RESPIRATORY DISORDER [None]
  - FORCED EXPIRATORY VOLUME DECREASED [None]
